FAERS Safety Report 7975865-7 (Version None)
Quarter: 2011Q4

REPORT INFORMATION
  Report Type: 
  Country: None (occurrence: None)
  Receive Date: 20111213
  Receipt Date: 20110929
  Transmission Date: 20120403
  Serious: No
  Sender: FDA-Public Use
  Company Number: US-AMGEN-USASP2011050542

PATIENT
  Sex: Female

DRUGS (2)
  1. ENBREL [Suspect]
     Indication: RHEUMATOID ARTHRITIS
     Dosage: 50 MG, QWK
     Route: 058
     Dates: start: 20030501
  2. TREXALL [Concomitant]
     Dosage: 10 MG, QWK
     Dates: start: 20030401

REACTIONS (2)
  - ARTHROPATHY [None]
  - INJECTION SITE PAIN [None]
